FAERS Safety Report 25549136 (Version 5)
Quarter: 2025Q4

REPORT INFORMATION
  Report Type: Report from Study
  Country: JP (occurrence: JP)
  Receive Date: 20250714
  Receipt Date: 20251225
  Transmission Date: 20260118
  Serious: Yes (Hospitalization)
  Sender: ABBVIE
  Company Number: JP-ABBVIE-6183725

PATIENT
  Age: 73 Year
  Sex: Female

DRUGS (7)
  1. VYALEV [Suspect]
     Active Substance: FOSCARBIDOPA\FOSLEVODOPA
     Indication: Parkinson^s disease
     Dosage: 6:30-22:30: 0.43 ML/H, 22:30-6:30: 0.23 ML/H,
     Route: 058
     Dates: start: 20250310, end: 2025
  2. VYALEV [Suspect]
     Active Substance: FOSCARBIDOPA\FOSLEVODOPA
     Dosage: DURING DAY: 0.35 ML/H, DURING NIGHT: 0.17 ML/H,
     Route: 058
     Dates: start: 2025, end: 2025
  3. VYALEV [Suspect]
     Active Substance: FOSCARBIDOPA\FOSLEVODOPA
     Dosage: DURING DAY: 0.44 ML/H, DURING NIGHT: 0.23 ML/H,
     Route: 058
     Dates: start: 2025, end: 2025
  4. VYALEV [Suspect]
     Active Substance: FOSCARBIDOPA\FOSLEVODOPA
     Dosage: DURING DAY: 0.45 ML/H, DURING NIGHT: 0.23 ML/H,
     Route: 058
     Dates: start: 2025, end: 2025
  5. VYALEV [Suspect]
     Active Substance: FOSCARBIDOPA\FOSLEVODOPA
     Dosage: DURING DAY: 0.45 ML/H, DURING NIGHT: 0.24 ML/H,
     Route: 058
     Dates: start: 2025, end: 2025
  6. VYALEV [Suspect]
     Active Substance: FOSCARBIDOPA\FOSLEVODOPA
     Dosage: DURING DAY: 0.45 ML/H FOR 16 HRS, DURING NIGHT: 0.21 ML/H FOR 8 HRS
     Route: 058
     Dates: start: 2025
  7. BENSERAZIDE HYDROCHLORIDE\LEVODOPA [Concomitant]
     Active Substance: BENSERAZIDE HYDROCHLORIDE\LEVODOPA
     Indication: Parkinson^s disease
     Dosage: 1 TABLET
     Route: 048

REACTIONS (23)
  - Fracture [Not Recovered/Not Resolved]
  - Infusion site reaction [Recovered/Resolved]
  - Infusion site bruising [Not Recovered/Not Resolved]
  - Infusion site discharge [Unknown]
  - Malaise [Unknown]
  - Panic disorder [Unknown]
  - Therapeutic product effect incomplete [Unknown]
  - Infusion site scar [Not Recovered/Not Resolved]
  - Infusion site induration [Unknown]
  - Infusion site reaction [Not Recovered/Not Resolved]
  - Nasopharyngitis [Unknown]
  - Infusion site induration [Recovering/Resolving]
  - Infusion site pain [Unknown]
  - Amnesia [Unknown]
  - Infusion site discharge [Unknown]
  - Memory impairment [Unknown]
  - Malaise [Unknown]
  - Device issue [Unknown]
  - Dry skin [Unknown]
  - Infusion site erythema [Unknown]
  - Infusion site swelling [Unknown]
  - Infusion site haemorrhage [Unknown]
  - Infusion site induration [Unknown]

NARRATIVE: CASE EVENT DATE: 20250101
